FAERS Safety Report 16665020 (Version 1)
Quarter: 2019Q3

REPORT INFORMATION
  Report Type: Spontaneous
  Country: FR (occurrence: FR)
  Receive Date: 20190803
  Receipt Date: 20190803
  Transmission Date: 20191004
  Serious: Yes (Other)
  Sender: FDA-Public Use
  Company Number: FR-SUN PHARMACEUTICAL INDUSTRIES LTD-2019RR-216307

PATIENT
  Age: 3 Year
  Sex: Male

DRUGS (1)
  1. CETIRIZINE [Suspect]
     Active Substance: CETIRIZINE HYDROCHLORIDE
     Indication: ACCIDENTAL EXPOSURE TO PRODUCT BY CHILD
     Dosage: 3.60 MILLIGRAM/KILOGRAM (INGUESTING FOUR 10 MG TABLETS)
     Route: 065

REACTIONS (3)
  - Hallucination [Unknown]
  - Restlessness [Unknown]
  - Incorrect dose administered [Unknown]
